FAERS Safety Report 25412554 (Version 6)
Quarter: 2025Q4

REPORT INFORMATION
  Report Type: Spontaneous
  Country: AU (occurrence: AU)
  Receive Date: 20250609
  Receipt Date: 20251208
  Transmission Date: 20260118
  Serious: Yes (Hospitalization, Other)
  Sender: MYLAN
  Company Number: AU-MYLANLABS-2025M1047484

PATIENT
  Age: 59 Year
  Sex: Male

DRUGS (1)
  1. CLOZARIL [Suspect]
     Active Substance: CLOZAPINE
     Indication: Schizophrenia
     Dosage: 175 MILLIGRAM

REACTIONS (4)
  - Systemic mastocytosis [Unknown]
  - Fall [Unknown]
  - Leukopenia [Recovering/Resolving]
  - Neutrophil count decreased [Recovered/Resolved]

NARRATIVE: CASE EVENT DATE: 20250810
